FAERS Safety Report 5512333-6 (Version None)
Quarter: 2007Q4

REPORT INFORMATION
  Report Type: 
  Country: None (occurrence: None)
  Receive Date: 20071108
  Receipt Date: 20071102
  Transmission Date: 20080405
  Serious: Yes (Hospitalization)
  Sender: FDA-Public Use
  Company Number: 2007333739

PATIENT
  Age: 43 Year
  Sex: Female
  Weight: 68.0396 kg

DRUGS (2)
  1. SUDAFED 12 HOUR [Suspect]
     Indication: EAR CONGESTION
     Dosage: 5 TABLETS AT ONCE, ORAL
     Route: 048
     Dates: start: 20071024, end: 20071024
  2. ADALAT [Concomitant]

REACTIONS (5)
  - HYPOAESTHESIA FACIAL [None]
  - INAPPROPRIATE SCHEDULE OF DRUG ADMINISTRATION [None]
  - INCORRECT DOSE ADMINISTERED [None]
  - MALAISE [None]
  - WRONG DRUG ADMINISTERED [None]
